FAERS Safety Report 8026072-3 (Version None)
Quarter: 2012Q1

REPORT INFORMATION
  Report Type: 
  Country: None (occurrence: None)
  Receive Date: 20120105
  Receipt Date: 20110613
  Transmission Date: 20120608
  Serious: No
  Sender: FDA-Public Use
  Company Number: US-ABBOTT-11P-163-0731870-00

PATIENT
  Sex: Female
  Weight: 83.536 kg

DRUGS (2)
  1. SYNTHROID [Suspect]
     Indication: HYPOTHYROIDISM
     Dates: start: 20100101
  2. SYNTHROID [Suspect]
     Indication: BASEDOW'S DISEASE

REACTIONS (4)
  - SWELLING FACE [None]
  - EXPIRED DRUG ADMINISTERED [None]
  - JOINT SWELLING [None]
  - OEDEMA PERIPHERAL [None]
